FAERS Safety Report 5442476-7 (Version None)
Quarter: 2007Q3

REPORT INFORMATION
  Report Type: 
  Country: None (occurrence: None)
  Receive Date: 20070830
  Receipt Date: 20070817
  Transmission Date: 20080115
  Serious: Yes (Hospitalization)
  Sender: FDA-Public Use
  Company Number: MPS1-10736

PATIENT
  Sex: Female
  Weight: 13.6 kg

DRUGS (1)
  1. ALDURAZYME [Suspect]
     Indication: MUCOPOLYSACCHARIDOSIS I
     Dosage: 0.58 MG/KG IV
     Route: 042
     Dates: start: 20060601

REACTIONS (2)
  - MUCOSAL INFLAMMATION [None]
  - STEM CELL TRANSPLANT [None]
